FAERS Safety Report 19143782 (Version 1)
Quarter: 2021Q2

REPORT INFORMATION
  Report Type: Spontaneous
  Country: BE (occurrence: BE)
  Receive Date: 20210415
  Receipt Date: 20210415
  Transmission Date: 20210717
  Serious: Yes (Death, Hospitalization)
  Sender: FDA-Public Use
  Company Number: BE-STRIDES ARCOLAB LIMITED-2021SP004232

PATIENT
  Age: 56 Year
  Sex: Female

DRUGS (5)
  1. COTRIMAXAZOLE [Concomitant]
     Active Substance: SULFAMETHOXAZOLE\TRIMETHOPRIM
     Indication: INFECTION PROPHYLAXIS
     Dosage: UNK
     Route: 065
     Dates: start: 2020
  2. MYCOPHENOLATE MOFETIL. [Suspect]
     Active Substance: MYCOPHENOLATE MOFETIL
     Indication: HEART TRANSPLANT
     Dosage: 1000 MILLIGRAM, BID
     Route: 065
     Dates: start: 2020, end: 2020
  3. METHYLPREDNISOLONE. [Suspect]
     Active Substance: METHYLPREDNISOLONE
     Indication: HEART TRANSPLANT
     Dosage: UNK, DECREASING DOSES
     Route: 065
     Dates: start: 2020
  4. VALGANCICLOVIR [VALGANCICLOVIR HYDROCHLORIDE] [Concomitant]
     Active Substance: VALGANCICLOVIR
     Indication: INFECTION PROPHYLAXIS
     Dosage: UNK
     Route: 065
     Dates: start: 2020
  5. TACROLIMUS. [Suspect]
     Active Substance: TACROLIMUS
     Indication: HEART TRANSPLANT
     Dosage: TROUGH LEVELS BETWEEN 8 AND 10 ?G/L
     Route: 065
     Dates: start: 2020

REACTIONS (3)
  - Respiratory failure [Fatal]
  - COVID-19 [Unknown]
  - Klebsiella infection [Unknown]

NARRATIVE: CASE EVENT DATE: 2020
